FAERS Safety Report 6277898-8 (Version None)
Quarter: 2009Q3

REPORT INFORMATION
  Report Type: 
  Country: None (occurrence: None)
  Receive Date: 20090722
  Receipt Date: 20090710
  Transmission Date: 20100115
  Serious: Yes (Death, Life-Threatening, Disabling)
  Sender: FDA-Public Use
  Company Number: US-MERCK-0906USA02982

PATIENT
  Age: 62 Year
  Sex: Male
  Weight: 95 kg

DRUGS (9)
  1. SINGULAIR [Suspect]
     Indication: ASTHMA
     Route: 048
     Dates: start: 20050601
  2. NEXIUM [Concomitant]
     Route: 065
  3. ASPIRIN [Concomitant]
     Route: 065
  4. ADVAIR HFA [Concomitant]
  5. FLONASE [Concomitant]
     Route: 065
  6. VYTORIN [Concomitant]
     Route: 065
  7. NORVASC [Concomitant]
     Route: 065
  8. CIPRO [Concomitant]
     Route: 065
  9. LIPITOR [Concomitant]
     Route: 065

REACTIONS (9)
  - ASPHYXIA [None]
  - CHEST PAIN [None]
  - COMPLETED SUICIDE [None]
  - DECREASED APPETITE [None]
  - FOOT FRACTURE [None]
  - INFLUENZA [None]
  - NOCTURIA [None]
  - RESPIRATORY RATE DECREASED [None]
  - WEIGHT DECREASED [None]
